FAERS Safety Report 13043032 (Version 1)
Quarter: 2016Q4

REPORT INFORMATION
  Report Type: Spontaneous
  Country: SG (occurrence: SG)
  Receive Date: 20161219
  Receipt Date: 20161219
  Transmission Date: 20170207
  Serious: Yes (Other)
  Sender: FDA-Public Use
  Company Number: SG-PFIZER INC-2016576207

PATIENT
  Age: 55 Year
  Sex: Male

DRUGS (4)
  1. HYDROCORTISONE. [Concomitant]
     Active Substance: HYDROCORTISONE
     Indication: EVIDENCE BASED TREATMENT
     Dosage: UNK
  2. CABERGOLINE. [Suspect]
     Active Substance: CABERGOLINE
     Indication: PROLACTIN-PRODUCING PITUITARY TUMOUR
     Dosage: UNK
  3. CABERGOLINE. [Suspect]
     Active Substance: CABERGOLINE
     Dosage: 4 MG, WEEKLY
  4. CABERGOLINE. [Suspect]
     Active Substance: CABERGOLINE
     Indication: CEREBROVASCULAR ACCIDENT
     Dosage: 3 MG, WEEKLY

REACTIONS (1)
  - Deafness neurosensory [Not Recovered/Not Resolved]
